FAERS Safety Report 5666631-6 (Version None)
Quarter: 2008Q1

REPORT INFORMATION
  Report Type: 
  Country: None (occurrence: None)
  Receive Date: 20080315
  Receipt Date: 20071220
  Transmission Date: 20080703
  Serious: No
  Sender: FDA-Public Use
  Company Number: US-ABBOTT-07P-163-0431375-00

PATIENT
  Sex: Female
  Weight: 74.002 kg

DRUGS (9)
  1. HUMIRA [Suspect]
     Indication: RHEUMATOID ARTHRITIS
     Route: 058
     Dates: start: 20051201, end: 20070901
  2. HUMIRA [Suspect]
     Dosage: PEN
     Route: 058
     Dates: start: 20071001
  3. HUMIRA [Suspect]
     Indication: RHEUMATOID ARTHRITIS
     Route: 058
     Dates: start: 20071001
  4. METFORMIN [Concomitant]
     Indication: DIABETES MELLITUS
     Route: 048
  5. GLYCOSID [Concomitant]
     Indication: DIABETES MELLITUS
     Route: 048
  6. QUINAPRIL HCL [Concomitant]
     Indication: HYPERTENSION
     Route: 048
  7. HYDROCHLOROTHIAZIDE [Concomitant]
     Indication: HYPERTENSION
     Route: 048
  8. VITAMIN E WITH WHEAT GERM CREAM [Concomitant]
     Indication: RASH
     Route: 061
  9. VITAMIN E WITH WHEAT GERM CREAM [Concomitant]
     Indication: PRURITUS

REACTIONS (8)
  - DRY SKIN [None]
  - INJECTION SITE BRUISING [None]
  - INJECTION SITE PAIN [None]
  - PRURITUS [None]
  - RASH [None]
  - RASH PRURITIC [None]
  - SKIN DISCOLOURATION [None]
  - SKIN EXFOLIATION [None]
